FAERS Safety Report 8207513-5 (Version None)
Quarter: 2012Q1

REPORT INFORMATION
  Report Type: 
  Country: None (occurrence: None)
  Receive Date: 20120313
  Receipt Date: 20120313
  Transmission Date: 20120608
  Serious: Yes (Other)
  Sender: FDA-Public Use
  Company Number: None

PATIENT
  Sex: Female
  Weight: 121.1104 kg

DRUGS (2)
  1. HALDOL [Suspect]
  2. DEPAKOTE [Suspect]

REACTIONS (6)
  - AFFECTIVE DISORDER [None]
  - CARDIAC DISORDER [None]
  - AMNESIA [None]
  - ADVERSE REACTION [None]
  - DIABETES MELLITUS [None]
  - RENAL FAILURE [None]
